FAERS Safety Report 15353690 (Version 4)
Quarter: 2019Q3

REPORT INFORMATION
  Report Type: Spontaneous
  Country: US (occurrence: US)
  Receive Date: 20180905
  Receipt Date: 20190702
  Transmission Date: 20191004
  Serious: Yes (Other)
  Sender: FDA-Public Use
  Company Number: US-DSJP-DSU-2017-107470

PATIENT

DRUGS (2)
  1. BENICAR HCT [Suspect]
     Active Substance: HYDROCHLOROTHIAZIDE\OLMESARTAN MEDOXOMIL
     Indication: PRODUCT USED FOR UNKNOWN INDICATION
     Dosage: 40-25 MG, QD
     Route: 048
     Dates: start: 20070101, end: 20150826
  2. BENICAR HCT [Suspect]
     Active Substance: HYDROCHLOROTHIAZIDE\OLMESARTAN MEDOXOMIL
     Dosage: 40-12.5 MG , UNK
     Dates: end: 20150826

REACTIONS (9)
  - Irritable bowel syndrome [Unknown]
  - Acute kidney injury [Unknown]
  - Haemorrhoids [Unknown]
  - Diverticulum intestinal [Unknown]
  - Diverticulitis [Unknown]
  - Chronic kidney disease [Not Recovered/Not Resolved]
  - Sprue-like enteropathy [Recovering/Resolving]
  - Large intestine polyp [Recovered/Resolved]
  - Inguinal hernia [Unknown]

NARRATIVE: CASE EVENT DATE: 20070416
